FAERS Safety Report 4445413-7 (Version None)
Quarter: 2004Q3

REPORT INFORMATION
  Report Type: 
  Country: None (occurrence: None)
  Receive Date: 20040730
  Receipt Date: 20030811
  Transmission Date: 20050211
  Serious: Yes (Other)
  Sender: FDA-Public Use
  Company Number: 2003-08-0967

PATIENT
  Age: 53 Year
  Sex: Female
  Weight: 56 kg

DRUGS (13)
  1. INTRON A [Suspect]
     Indication: MALIGNANT MELANOMA STAGE III
     Dosage: SEE IMAGE
     Route: 058
     Dates: start: 20030127, end: 20030130
  2. INTRON A [Suspect]
     Indication: MALIGNANT MELANOMA STAGE III
     Dosage: SEE IMAGE
     Route: 058
     Dates: start: 20030210, end: 20030214
  3. INTRON A [Suspect]
     Indication: MALIGNANT MELANOMA STAGE III
     Dosage: SEE IMAGE
     Route: 058
     Dates: start: 20030101, end: 20030810
  4. INTRON A [Suspect]
     Indication: MALIGNANT MELANOMA STAGE III
     Dosage: SEE IMAGE
     Route: 058
     Dates: start: 20030822
  5. TOPROL-XL [Concomitant]
  6. VIOXX [Concomitant]
  7. GLUCOSAMINE [Concomitant]
  8. MULTIVITAMIN [Concomitant]
  9. CALCIUM [Concomitant]
  10. VITAMIN E [Concomitant]
  11. KYTRIL [Concomitant]
  12. ALEVE [Concomitant]
  13. TYLENOL [Concomitant]

REACTIONS (21)
  - ALANINE AMINOTRANSFERASE INCREASED [None]
  - ASPARTATE AMINOTRANSFERASE INCREASED [None]
  - CHALAZION [None]
  - CYST [None]
  - DEPRESSION [None]
  - DIFFICULTY IN WALKING [None]
  - DYSPHAGIA [None]
  - ERYTHEMA [None]
  - FATIGUE [None]
  - FOLLICULITIS [None]
  - GASTROOESOPHAGEAL REFLUX DISEASE [None]
  - GENITAL PRURITUS FEMALE [None]
  - HOT FLUSH [None]
  - MALAISE [None]
  - NAUSEA [None]
  - ORBITAL OEDEMA [None]
  - PAIN IN EXTREMITY [None]
  - PRURITUS [None]
  - PYREXIA [None]
  - RASH [None]
  - SKIN LESION [None]
